FAERS Safety Report 8354134-X (Version None)
Quarter: 2012Q2

REPORT INFORMATION
  Report Type: 
  Country: None (occurrence: None)
  Receive Date: 20120511
  Receipt Date: 20120503
  Transmission Date: 20120825
  Serious: Yes (Death)
  Sender: FDA-Public Use
  Company Number: US-ROCHE-1027848

PATIENT
  Sex: Female
  Weight: 61.744 kg

DRUGS (1)
  1. XELODA [Suspect]
     Indication: COLON CANCER
     Route: 048
     Dates: start: 20100830, end: 20101111

REACTIONS (1)
  - COLON CANCER METASTATIC [None]
